FAERS Safety Report 10433726 (Version 2)
Quarter: 2014Q3

REPORT INFORMATION
  Report Type: Spontaneous
  Country: FI (occurrence: FI)
  Receive Date: 20140905
  Receipt Date: 20140909
  Transmission Date: 20150326
  Serious: Yes (Other)
  Sender: FDA-Public Use
  Company Number: FI-SA-2014SA116231

PATIENT
  Sex: Female

DRUGS (5)
  1. MYOCRISIN [Concomitant]
     Indication: RHEUMATOID ARTHRITIS
     Route: 030
     Dates: end: 20140624
  2. REMICADE [Suspect]
     Active Substance: INFLIXIMAB
     Indication: RHEUMATOID ARTHRITIS
     Dosage: FREQ: EVERY 8 WEEKS?FORM: INFUSION?3 INFUSION IN TOTAL
     Route: 042
     Dates: start: 201402, end: 20140411
  3. OXIKLORIN [Concomitant]
     Active Substance: HYDROXYCHLOROQUINE SULFATE
     Indication: RHEUMATOID ARTHRITIS
     Route: 048
  4. ARAVA [Suspect]
     Active Substance: LEFLUNOMIDE
     Indication: RHEUMATOID ARTHRITIS
     Route: 048
     Dates: start: 201106, end: 20140612
  5. PREDNISOLON [Concomitant]
     Active Substance: PREDNISOLONE
     Indication: RHEUMATOID ARTHRITIS
     Route: 048

REACTIONS (10)
  - Haemangioma of liver [Unknown]
  - Decreased appetite [Recovering/Resolving]
  - Alanine aminotransferase increased [Unknown]
  - Polyneuropathy [Unknown]
  - Gamma-glutamyltransferase increased [Unknown]
  - Blood alkaline phosphatase increased [Unknown]
  - Dyspnoea [Unknown]
  - Computerised tomogram thorax abnormal [Unknown]
  - Pyrexia [Recovering/Resolving]
  - Cough [Recovering/Resolving]

NARRATIVE: CASE EVENT DATE: 201406
